FAERS Safety Report 19989670 (Version 1)
Quarter: 2021Q4

REPORT INFORMATION
  Report Type: Report from Study
  Country: None (occurrence: CO)
  Receive Date: 20211025
  Receipt Date: 20211025
  Transmission Date: 20220303
  Serious: Yes (Other)
  Sender: FDA-Public Use
  Company Number: CO-ABBVIE-21K-036-4133477-00

PATIENT
  Age: 39 Year
  Sex: Male
  Weight: 72 kg

DRUGS (1)
  1. HUMIRA [Suspect]
     Active Substance: ADALIMUMAB
     Indication: Colitis ulcerative
     Route: 058
     Dates: start: 20191107

REACTIONS (9)
  - Haematochezia [Recovered/Resolved]
  - Colitis ulcerative [Recovered/Resolved]
  - Abdominal distension [Recovering/Resolving]
  - Abdominal pain lower [Recovering/Resolving]
  - Gastritis [Recovering/Resolving]
  - Abdominal pain upper [Recovering/Resolving]
  - Chronic gastritis [Recovering/Resolving]
  - Infection [Unknown]
  - Discomfort [Unknown]

NARRATIVE: CASE EVENT DATE: 20210501
